FAERS Safety Report 18072663 (Version 1)
Quarter: 2020Q3

REPORT INFORMATION
  Report Type: Spontaneous
  Country: US (occurrence: US)
  Receive Date: 20200727
  Receipt Date: 20200727
  Transmission Date: 20201103
  Serious: No
  Sender: FDA-Public Use
  Company Number: US-SA-2020SA187183

PATIENT

DRUGS (17)
  1. TURMERIC [CURCUMA LONGA RHIZOME] [Concomitant]
     Active Substance: HERBALS\TURMERIC
  2. GARLIC (DEODORIZED) [Concomitant]
  3. FISH OIL [Concomitant]
     Active Substance: FISH OIL
  4. FLECAINIDE ACETATE. [Concomitant]
     Active Substance: FLECAINIDE ACETATE
  5. HYDROXYZINE [Concomitant]
     Active Substance: HYDROXYZINE HYDROCHLORIDE
  6. VITAMIN C [Concomitant]
     Active Substance: ASCORBIC ACID
  7. KEVZARA [Suspect]
     Active Substance: SARILUMAB
     Indication: RHEUMATOID ARTHRITIS
     Dosage: 200 MG, QOW
     Route: 058
     Dates: start: 2007
  8. FERROUS FUMARATE [Concomitant]
     Active Substance: FERROUS FUMARATE
  9. ZINC. [Concomitant]
     Active Substance: ZINC
  10. TORSEMIDE. [Concomitant]
     Active Substance: TORSEMIDE
  11. XARELTO [Concomitant]
     Active Substance: RIVAROXABAN
  12. VITAMINS NOS [Concomitant]
     Active Substance: VITAMINS
  13. ATORVASTATIN [ATORVASTATIN CALCIUM] [Concomitant]
     Active Substance: ATORVASTATIN CALCIUM
  14. LOSARTAN POTASSIUM. [Concomitant]
     Active Substance: LOSARTAN POTASSIUM
  15. VITAMIN D3 [Concomitant]
     Active Substance: CHOLECALCIFEROL
  16. MAGNESIUM [Concomitant]
     Active Substance: MAGNESIUM
  17. POTASSIUM [Concomitant]
     Active Substance: POTASSIUM

REACTIONS (1)
  - Injection site swelling [Unknown]

NARRATIVE: CASE EVENT DATE: 2007
